FAERS Safety Report 5339799-9 (Version None)
Quarter: 2007Q2

REPORT INFORMATION
  Report Type: 
  Country: None (occurrence: None)
  Receive Date: 20070525
  Receipt Date: 20070511
  Transmission Date: 20071010
  Serious: Yes (Other)
  Sender: FDA-Public Use
  Company Number: POMP-11047

PATIENT
  Age: 1 Year
  Sex: Male

DRUGS (3)
  1. MYOZYME [Suspect]
     Indication: GLYCOGEN STORAGE DISEASE TYPE II
     Dosage: 20 MG/KG Q2WKS IV
     Route: 042
     Dates: start: 20070101
  2. MYOZYME [Suspect]
     Indication: GLYCOGEN STORAGE DISEASE TYPE II
     Dosage: 10 MG/KG QWK IV
     Route: 042
     Dates: start: 20070219, end: 20070226
  3. MYOZYME [Suspect]
     Indication: GLYCOGEN STORAGE DISEASE TYPE II
     Dosage: 20 MG/KG Q2WKS IV
     Route: 042
     Dates: start: 20061107, end: 20070117

REACTIONS (6)
  - APNOEA [None]
  - BRONCHOSPASM [None]
  - DISEASE RECURRENCE [None]
  - HYPOTENSION [None]
  - OXYGEN SATURATION DECREASED [None]
  - WHEEZING [None]
